FAERS Safety Report 13209377 (Version 1)
Quarter: 2017Q1

REPORT INFORMATION
  Report Type: Report from Study
  Country: DE (occurrence: DE)
  Receive Date: 20170209
  Receipt Date: 20170209
  Transmission Date: 20170428
  Serious: Yes (Hospitalization)
  Sender: FDA-Public Use
  Company Number: PHHO2017DE002962

PATIENT
  Age: 15 Year
  Sex: Male

DRUGS (5)
  1. NEORAL [Suspect]
     Active Substance: CYCLOSPORINE
     Indication: TUBULOINTERSTITIAL NEPHRITIS
  2. TRIMETHOPRIM. [Concomitant]
     Active Substance: TRIMETHOPRIM
     Indication: PROPHYLAXIS URINARY TRACT INFECTION
     Dosage: 100 MG, QD
     Route: 048
     Dates: start: 20151028
  3. NEORAL [Suspect]
     Active Substance: CYCLOSPORINE
     Indication: RENAL TRANSPLANT
     Dosage: 50 MG, BID
     Route: 048
     Dates: start: 20151028
  4. EVEROLIMUS [Suspect]
     Active Substance: EVEROLIMUS
     Indication: RENAL TRANSPLANT
     Dosage: 0.45 MG, BID
     Route: 048
     Dates: start: 20151125
  5. EVEROLIMUS [Suspect]
     Active Substance: EVEROLIMUS
     Indication: TUBULOINTERSTITIAL NEPHRITIS

REACTIONS (1)
  - Ingrowing nail [Recovering/Resolving]

NARRATIVE: CASE EVENT DATE: 20160501
